FAERS Safety Report 7357595-8 (Version None)
Quarter: 2011Q1

REPORT INFORMATION
  Report Type: 
  Country: None (occurrence: None)
  Receive Date: 20110317
  Receipt Date: 20110211
  Transmission Date: 20110831
  Serious: Yes (Life-Threatening, Hospitalization)
  Sender: FDA-Public Use
  Company Number: US-BRISTOL-MYERS SQUIBB COMPANY-15453640

PATIENT
  Age: 65 Year
  Sex: Male
  Weight: 66 kg

DRUGS (8)
  1. 5-FLUOROURACIL [Suspect]
     Indication: HEAD AND NECK CANCER
     Dosage: RECENT INF 10DEC10 1880MG/M2 18OCT10 1448 MG/M2 UNK 1432MG/M2 10DEC10
     Route: 042
     Dates: start: 20101018, end: 20101210
  2. COMPAZINE [Concomitant]
     Indication: PROPHYLAXIS
     Route: 065
     Dates: start: 20101029
  3. EMEND [Concomitant]
     Indication: PROPHYLAXIS
     Dosage: ALSO ORAL ON 19OCT2010
     Route: 042
     Dates: start: 20101018
  4. IMODIUM [Concomitant]
     Route: 065
     Dates: start: 20101029
  5. CETUXIMAB [Suspect]
     Indication: HEAD AND NECK CANCER
     Dosage: RECENT INF(7TH):13DEC2010 752MG/M2 18OCT10 470MG/M2 UNK 453MG/M2 UNK 448MG/M2 13DEC10
     Route: 042
     Dates: start: 20101018, end: 20101213
  6. CISPLATIN [Suspect]
     Indication: HEAD AND NECK CANCER
     Dosage: RECENT INFO 06DEC2010 188MG/M2 18OCT10 145MG/M2 UNK 143MG/M2 06DEC10
     Route: 042
     Dates: start: 20101018, end: 20101206
  7. DECADRON [Concomitant]
     Indication: PROPHYLAXIS
     Route: 048
     Dates: start: 20101017
  8. ACETAMINOPHEN [Concomitant]
     Indication: PROPHYLAXIS
     Route: 065
     Dates: start: 20101029

REACTIONS (7)
  - EMBOLISM ARTERIAL [None]
  - ACTIVATED PARTIAL THROMBOPLASTIN TIME PROLONGED [None]
  - INTESTINAL ISCHAEMIA [None]
  - BLOOD BILIRUBIN INCREASED [None]
  - PLATELET COUNT DECREASED [None]
  - INTERNATIONAL NORMALISED RATIO INCREASED [None]
  - NEUTROPHIL COUNT DECREASED [None]
